FAERS Safety Report 9813265 (Version 1)
Quarter: 2014Q1

REPORT INFORMATION
  Report Type: Spontaneous
  Country: US (occurrence: US)
  Receive Date: 20140113
  Receipt Date: 20140113
  Transmission Date: 20141002
  Serious: Yes (Hospitalization)
  Sender: FDA-Public Use
  Company Number: US-BAXTER-2014BAX000916

PATIENT
  Sex: Male

DRUGS (6)
  1. DIANEAL LOW CALCIUM [Suspect]
     Indication: PERITONEAL DIALYSIS
     Route: 033
     Dates: end: 201311
  2. DIANEAL LOW CALCIUM [Suspect]
     Route: 033
     Dates: start: 2013
  3. DIANEAL LOW CALCIUM [Suspect]
     Indication: PERITONEAL DIALYSIS
     Route: 033
     Dates: end: 201311
  4. DIANEAL LOW CALCIUM [Suspect]
     Route: 033
     Dates: start: 2013
  5. DIANEAL LOW CALCIUM [Suspect]
     Indication: PERITONEAL DIALYSIS
     Route: 033
     Dates: end: 201311
  6. DIANEAL LOW CALCIUM [Suspect]
     Route: 033
     Dates: start: 2013

REACTIONS (4)
  - Adverse drug reaction [Recovering/Resolving]
  - Constipation [Recovered/Resolved]
  - Hypotension [Recovering/Resolving]
  - Back pain [Unknown]
